FAERS Safety Report 7464912-7 (Version None)
Quarter: 2011Q2

REPORT INFORMATION
  Report Type: 
  Country: None (occurrence: None)
  Receive Date: 20110505
  Receipt Date: 20110505
  Transmission Date: 20111010
  Serious: Yes (Other)
  Sender: FDA-Public Use
  Company Number: None

PATIENT
  Age: 85 Year

DRUGS (1)
  1. ULTRAM [Suspect]
     Indication: BACK PAIN
     Dosage: PRN FOR PAIN P.O.
     Route: 048
     Dates: start: 20110202, end: 20110210

REACTIONS (5)
  - THINKING ABNORMAL [None]
  - SPEECH DISORDER [None]
  - PHOTOPSIA [None]
  - HALLUCINATION, VISUAL [None]
  - MEMORY IMPAIRMENT [None]
